FAERS Safety Report 6484424-7 (Version None)
Quarter: 2009Q4

REPORT INFORMATION
  Report Type: 
  Country: None (occurrence: None)
  Receive Date: 20091203
  Receipt Date: 20091126
  Transmission Date: 20100525
  Serious: Yes (Hospitalization)
  Sender: FDA-Public Use
  Company Number: 8055290

PATIENT
  Age: 24 Year
  Sex: Female

DRUGS (1)
  1. THEOPHYLLINE [Suspect]
     Indication: BRONCHITIS

REACTIONS (7)
  - BEDRIDDEN [None]
  - BRAIN OEDEMA [None]
  - DRUG LEVEL INCREASED [None]
  - PARTIAL SEIZURES [None]
  - PSYCHOMOTOR RETARDATION [None]
  - QUADRIPLEGIA [None]
  - STATUS EPILEPTICUS [None]
